FAERS Safety Report 6402674-2 (Version None)
Quarter: 2009Q4

REPORT INFORMATION
  Report Type: 
  Country: None (occurrence: None)
  Receive Date: 20091009
  Receipt Date: 20090930
  Transmission Date: 20100525
  Serious: Yes (Other)
  Sender: FDA-Public Use
  Company Number: ADR34182009

PATIENT
  Age: 67 Year
  Sex: Male

DRUGS (6)
  1. CIPROFLOXACIN [Suspect]
     Indication: BRONCHITIS
     Dosage: 1 G, ORAL
     Route: 048
  2. ASPIRIN [Concomitant]
  3. ATORVASTATIN [Concomitant]
  4. SERETIDE (FLUTICASONE, SALMETEROL) [Concomitant]
  5. TIOTROPIUM [Concomitant]
  6. RANITIDINE [Concomitant]

REACTIONS (2)
  - MUSCLE RUPTURE [None]
  - TENDONITIS [None]
